FAERS Safety Report 11093797 (Version 3)
Quarter: 2016Q2

REPORT INFORMATION
  Report Type: Report from Study
  Country: JP (occurrence: JP)
  Receive Date: 20150506
  Receipt Date: 20160406
  Transmission Date: 20160815
  Serious: Yes (Death, Other)
  Sender: FDA-Public Use
  Company Number: JP-ACTELION-A-CH2015-117184

PATIENT
  Age: 69 Year
  Sex: Female

DRUGS (7)
  1. FUROSEMIDE. [Concomitant]
     Active Substance: FUROSEMIDE
  2. OXYGEN. [Concomitant]
     Active Substance: OXYGEN
  3. VELETRI [Suspect]
     Active Substance: EPOPROSTENOL
     Indication: PULMONARY ARTERIAL HYPERTENSION
     Dosage: 93 NG/KG, PER MIN
     Route: 042
     Dates: start: 20140117
  4. SILDENAFIL. [Concomitant]
     Active Substance: SILDENAFIL
  5. AZOSEMIDE [Concomitant]
     Active Substance: AZOSEMIDE
  6. SPIRONOLACTONE. [Concomitant]
     Active Substance: SPIRONOLACTONE
  7. AMBRISENTAN [Concomitant]
     Active Substance: AMBRISENTAN

REACTIONS (2)
  - Bile duct cancer [Fatal]
  - Thymoma [Not Recovered/Not Resolved]

NARRATIVE: CASE EVENT DATE: 20141025
